FAERS Safety Report 25430325 (Version 1)
Quarter: 2025Q2

REPORT INFORMATION
  Report Type: Spontaneous
  Country: US (occurrence: None)
  Receive Date: 20250612
  Receipt Date: 20250612
  Transmission Date: 20250717
  Serious: Yes (Death)
  Sender: FDA-CTU
  Company Number: None

PATIENT
  Age: 69 Year
  Sex: Male
  Weight: 68.5 kg

DRUGS (1)
  1. MIRCERA [Suspect]
     Active Substance: METHOXY POLYETHYLENE GLYCOL-EPOETIN BETA
     Indication: Anaemia
     Route: 040
     Dates: start: 20250530, end: 20250530

REACTIONS (4)
  - Blood pressure increased [None]
  - Heart rate decreased [None]
  - Dialysis [None]
  - Loss of consciousness [None]

NARRATIVE: CASE EVENT DATE: 20250530
